FAERS Safety Report 10074438 (Version 1)
Quarter: 2014Q2

REPORT INFORMATION
  Report Type: Spontaneous
  Country: US (occurrence: US)
  Receive Date: 20140411
  Receipt Date: 20140411
  Transmission Date: 20141212
  Serious: No
  Sender: FDA-Public Use
  Company Number: US-SANOFI-AVENTIS-2013SA085332

PATIENT
  Age: 73 Year
  Sex: Female

DRUGS (3)
  1. ALLEGRA D [Suspect]
     Indication: HYPERSENSITIVITY
     Dosage: DOSE:-60 MG/120 MG EVERY 12 HOUR
     Route: 048
  2. ALLEGRA D [Suspect]
     Indication: NASAL CONGESTION
     Dosage: DOSE:-60 MG/120 MG EVERY 12 HOUR
     Route: 048
  3. ALBUTEROL [Concomitant]

REACTIONS (2)
  - Insomnia [Not Recovered/Not Resolved]
  - Drug ineffective [Unknown]
